FAERS Safety Report 8267822-0 (Version None)
Quarter: 2012Q2

REPORT INFORMATION
  Report Type: 
  Country: None (occurrence: None)
  Receive Date: 20120409
  Receipt Date: 20120404
  Transmission Date: 20120825
  Serious: Yes (Death)
  Sender: FDA-Public Use
  Company Number: SZ-ASTRAZENECA-2012SE21906

PATIENT
  Age: 66 Year
  Sex: Female

DRUGS (13)
  1. PANTOPRAZOLE [Concomitant]
     Route: 048
     Dates: end: 20120229
  2. LEUCOVORIN CALCIUM [Concomitant]
     Route: 042
     Dates: start: 20120304
  3. PREDNISOLONE [Concomitant]
     Route: 048
     Dates: end: 20120229
  4. ESCITALOPRAM [Concomitant]
     Route: 048
     Dates: end: 20120229
  5. ZOVIRAX [Suspect]
     Indication: ENCEPHALITIS VIRAL
     Route: 040
     Dates: start: 20120229, end: 20120304
  6. CARBOXYPEPTIDASE G2 [Concomitant]
     Route: 042
     Dates: start: 20120304, end: 20120304
  7. ESOMEPRAZOLE SODIUM [Interacting]
     Route: 042
     Dates: start: 20120229
  8. METHOTREXATE [Interacting]
     Indication: PERIPHERAL T-CELL LYMPHOMA UNSPECIFIED
     Route: 041
     Dates: start: 20120303, end: 20120303
  9. FRAGMIN [Suspect]
     Indication: NEOPLASM PROPHYLAXIS
     Route: 058
     Dates: start: 20120229, end: 20120304
  10. AMOXICILLIN TRIHYDRATE [Interacting]
     Indication: BACTERIAL INFECTION
     Route: 040
     Dates: start: 20120229
  11. ROCEPHIN [Suspect]
     Indication: BACTERIAL INFECTION
     Route: 040
     Dates: start: 20120229, end: 20120303
  12. DIPYRONE TAB [Suspect]
     Indication: PYREXIA
     Route: 040
     Dates: start: 20120229, end: 20120303
  13. AMOXICILLIN TRIHYDRATE [Interacting]
     Route: 040
     Dates: start: 20120305

REACTIONS (7)
  - RENAL FAILURE ACUTE [None]
  - DRUG LEVEL INCREASED [None]
  - CLOSTRIDIUM DIFFICILE COLITIS [None]
  - DRUG INTERACTION [None]
  - LIVER INJURY [None]
  - PANCYTOPENIA [None]
  - SEPSIS [None]
